FAERS Safety Report 7148370-8 (Version None)
Quarter: 2010Q4

REPORT INFORMATION
  Report Type: 
  Country: None (occurrence: None)
  Receive Date: 20101209
  Receipt Date: 20101203
  Transmission Date: 20110411
  Serious: Yes (Other)
  Sender: FDA-Public Use
  Company Number: US-PFIZER INC-2004026562

PATIENT
  Sex: Female

DRUGS (3)
  1. TIKOSYN [Suspect]
     Indication: ILL-DEFINED DISORDER
     Route: 065
  2. AMOXICILLIN [Concomitant]
  3. FLUCONAZOLE [Concomitant]

REACTIONS (7)
  - ABDOMINAL DISCOMFORT [None]
  - BACK DISORDER [None]
  - BREAST PAIN [None]
  - COUGH [None]
  - MASTECTOMY [None]
  - MUSCULOSKELETAL CHEST PAIN [None]
  - NASOPHARYNGITIS [None]
